FAERS Safety Report 19849417 (Version 6)
Quarter: 2022Q3

REPORT INFORMATION
  Report Type: Report from Study
  Country: US (occurrence: US)
  Receive Date: 20210918
  Receipt Date: 20220706
  Transmission Date: 20221026
  Serious: Yes (Hospitalization, Other)
  Sender: FDA-Public Use
  Company Number: US-TAKEDA-2021TUS056496

PATIENT
  Sex: Female
  Weight: 159 kg

DRUGS (41)
  1. HUMAN IMMUNOGLOBULIN G [Suspect]
     Active Substance: HUMAN IMMUNOGLOBULIN G
     Indication: Myasthenia gravis
     Dosage: 30 GRAM, Q2WEEKS
     Route: 042
     Dates: start: 20210421
  2. HUMAN IMMUNOGLOBULIN G [Suspect]
     Active Substance: HUMAN IMMUNOGLOBULIN G
     Dosage: 30 GRAM, 1/WEEK
     Route: 042
     Dates: start: 20210421
  3. DIPHENHYDRAMINE [Concomitant]
     Active Substance: DIPHENHYDRAMINE
  4. HEPARIN [Concomitant]
     Active Substance: HEPARIN SODIUM
  5. DIETARY SUPPLEMENT\PROBIOTICS [Concomitant]
     Active Substance: DIETARY SUPPLEMENT\PROBIOTICS
  6. EPINEPHRINE [Concomitant]
     Active Substance: EPINEPHRINE
  7. SODIUM CHLORIDE [Concomitant]
     Active Substance: SODIUM CHLORIDE
  8. HYDROXYCHLOROQUINE [Concomitant]
     Active Substance: HYDROXYCHLOROQUINE
  9. DULOXETINE [Concomitant]
     Active Substance: DULOXETINE
  10. OMEPRAZOLE [Concomitant]
     Active Substance: OMEPRAZOLE
  11. TRIAMCINOLONE [Concomitant]
     Active Substance: TRIAMCINOLONE
  12. CALCIUM\VITAMIN D [Concomitant]
     Active Substance: CALCIUM\VITAMIN D
  13. CALCIUM [Concomitant]
     Active Substance: CALCIUM
  14. ACETAMINOPHEN [Concomitant]
     Active Substance: ACETAMINOPHEN
  15. SYSTANE (HYPROMELLOSE 2910 (4000 MPA.S)) [Concomitant]
     Active Substance: HYPROMELLOSE 2910 (4000 MPA.S)
  16. PRAVASTATIN [Concomitant]
     Active Substance: PRAVASTATIN
  17. ZOFRAN [Concomitant]
     Active Substance: ONDANSETRON HYDROCHLORIDE
  18. DEPAKOTE ER [Concomitant]
     Active Substance: DIVALPROEX SODIUM
  19. CELLCEPT [Concomitant]
     Active Substance: MYCOPHENOLATE MOFETIL
  20. PROMETHAZINE [Concomitant]
     Active Substance: PROMETHAZINE HYDROCHLORIDE
  21. FAMOTIDINE [Concomitant]
     Active Substance: FAMOTIDINE
  22. FOLIC ACID [Concomitant]
     Active Substance: FOLIC ACID
  23. VITAMINS [Concomitant]
     Active Substance: VITAMINS
  24. SODIUM CHLORIDE [Concomitant]
     Active Substance: SODIUM CHLORIDE
  25. MESTINON [Concomitant]
     Active Substance: PYRIDOSTIGMINE BROMIDE
  26. TRAZODONE HCL [Concomitant]
     Active Substance: TRAZODONE HYDROCHLORIDE
  27. NORCO [Concomitant]
     Active Substance: ACETAMINOPHEN\HYDROCODONE BITARTRATE
  28. NEURONTIN [Concomitant]
     Active Substance: GABAPENTIN
  29. PROAIR HFA [Concomitant]
     Active Substance: ALBUTEROL SULFATE
  30. TYLENOL [Concomitant]
     Active Substance: ACETAMINOPHEN
  31. BENADRYL [Concomitant]
     Active Substance: DIPHENHYDRAMINE HYDROCHLORIDE
  32. Lmx [Concomitant]
  33. DEXTROSE [Concomitant]
     Active Substance: DEXTROSE
  34. METHOTREXATE [Concomitant]
     Active Substance: METHOTREXATE
  35. MUPIROCIN [Concomitant]
     Active Substance: MUPIROCIN
  36. CLINDESSE [Concomitant]
     Active Substance: CLINDAMYCIN PHOSPHATE
  37. FIORICET [Concomitant]
     Active Substance: ACETAMINOPHEN\BUTALBITAL\CAFFEINE
  38. LIDOCAINE [Concomitant]
     Active Substance: LIDOCAINE
  39. MECLIZINE [Concomitant]
     Active Substance: MECLIZINE HYDROCHLORIDE
  40. BIOTIN [Concomitant]
     Active Substance: BIOTIN
  41. VITAMIN D3 [Concomitant]
     Active Substance: CHOLECALCIFEROL

REACTIONS (5)
  - Hospitalisation [Unknown]
  - Myasthenia gravis [Unknown]
  - Fall [Unknown]
  - Foot fracture [Unknown]
  - Lower limb fracture [Unknown]
